FAERS Safety Report 9443605 (Version 1)
Quarter: 2013Q3

REPORT INFORMATION
  Report Type: Spontaneous
  Country: BR (occurrence: BR)
  Receive Date: 20130806
  Receipt Date: 20130806
  Transmission Date: 20140515
  Serious: Yes (Hospitalization, Other)
  Sender: FDA-Public Use
  Company Number: BR-MERCK-1307BRA016947

PATIENT
  Age: 59 Year
  Sex: Male
  Weight: 70 kg

DRUGS (3)
  1. COZAAR [Suspect]
     Indication: HYPERTENSION
     Dosage: 50 MG, QAM
     Route: 048
     Dates: start: 200707
  2. ZETIA [Suspect]
     Indication: BLOOD CHOLESTEROL INCREASED
     Dosage: 10 MG, QPM
     Route: 048
     Dates: start: 20130710, end: 20130729
  3. ALGINAC [Concomitant]
     Indication: SPINAL PAIN
     Dosage: 1 DF, Q12H
     Route: 048
     Dates: start: 2003

REACTIONS (6)
  - Prostatic operation [Unknown]
  - Exostosis [Not Recovered/Not Resolved]
  - Intervertebral disc protrusion [Not Recovered/Not Resolved]
  - Nephropathy [Not Recovered/Not Resolved]
  - Dental implantation [Unknown]
  - Gingival graft [Unknown]
